FAERS Safety Report 21447606 (Version 1)
Quarter: 2022Q4

REPORT INFORMATION
  Report Type: Spontaneous
  Country: CN (occurrence: CN)
  Receive Date: 20221012
  Receipt Date: 20221012
  Transmission Date: 20230112
  Serious: Yes (Hospitalization)
  Sender: FDA-Public Use
  Company Number: CN-009507513-2210CHN003147

PATIENT
  Age: 59 Year
  Sex: Male
  Weight: 59 kg

DRUGS (5)
  1. JANUVIA [Suspect]
     Active Substance: SITAGLIPTIN PHOSPHATE
     Indication: Diabetic complication renal
     Dosage: 100 MILLIGRAMS (MG), DAILY (QD) BEFORE LUNCH
     Route: 048
     Dates: start: 20220905, end: 20220909
  2. GLUCOBAY [Suspect]
     Active Substance: ACARBOSE
     Indication: Diabetic complication renal
     Dosage: 0.1 GRAMS (G), 3 TIMES PER DAY (TID) WITH MEALS
     Route: 048
     Dates: start: 20220905, end: 20220905
  3. GLUCOPHAGE [Suspect]
     Active Substance: METFORMIN HYDROCHLORIDE
     Indication: Diabetic complication renal
     Dosage: 500 MILLIGRAMS (MG), TWICE A DAY (BID) WITH MEALS
     Route: 048
     Dates: start: 20220904, end: 20220909
  4. TOUJEO [Suspect]
     Active Substance: INSULIN GLARGINE
     Indication: Diabetic complication renal
     Dosage: 24 U, DAILY (QD) BEFORE LUNCH
     Route: 058
     Dates: start: 20220905, end: 20220909
  5. TOUJEO [Suspect]
     Active Substance: INSULIN GLARGINE
     Dosage: 18U, DAILY (QD) BEFORE LUNCH
     Route: 058
     Dates: start: 20220904, end: 20220904

REACTIONS (4)
  - Hypoglycaemia [Recovering/Resolving]
  - Palpitations [Recovering/Resolving]
  - Tremor [Recovering/Resolving]
  - Hyperhidrosis [Recovering/Resolving]

NARRATIVE: CASE EVENT DATE: 20220905
